FAERS Safety Report 20811758 (Version 1)
Quarter: 2022Q2

REPORT INFORMATION
  Report Type: Spontaneous
  Country: US (occurrence: US)
  Receive Date: 20220511
  Receipt Date: 20220511
  Transmission Date: 20220720
  Serious: Yes (Other)
  Sender: FDA-Public Use
  Company Number: US-SUN PHARMACEUTICAL INDUSTRIES LTD-2022R1-335816

PATIENT
  Sex: Male
  Weight: 1529.7 kg

DRUGS (1)
  1. METHADONE [Suspect]
     Active Substance: METHADONE HYDROCHLORIDE
     Indication: Drug use disorder
     Dosage: UNK
     Route: 064

REACTIONS (4)
  - Drug withdrawal syndrome neonatal [Unknown]
  - Placental insufficiency [Recovering/Resolving]
  - Foetal exposure during pregnancy [Unknown]
  - Live birth [Unknown]
